FAERS Safety Report 10449327 (Version 1)
Quarter: 2014Q3

REPORT INFORMATION
  Report Type: Report from Study
  Country: AU (occurrence: AU)
  Receive Date: 20140912
  Receipt Date: 20140912
  Transmission Date: 20150326
  Serious: Yes (Other)
  Sender: FDA-Public Use
  Company Number: PHHY2014AU114807

PATIENT
  Sex: Male

DRUGS (6)
  1. ACLASTA [Suspect]
     Active Substance: ZOLEDRONIC ACID
     Dosage: 5 MG, UNK
     Route: 042
     Dates: start: 20140825
  2. ACIMAX [Concomitant]
     Active Substance: OMEPRAZOLE
     Dosage: 1 DF, DAILY, M.D.U (TO BE USED AS DIRECTED)
     Route: 048
  3. FLUVAX [Concomitant]
     Active Substance: INFLUENZA VIRUS VACCINE
     Dosage: UNK
  4. FERROUS SULFATE [Concomitant]
     Active Substance: FERROUS SULFATE\FERROUS SULFATE, DRIED
     Dosage: 10 ML, DAILY
     Route: 048
  5. AVAPRO HCT [Concomitant]
     Active Substance: HYDROCHLOROTHIAZIDE\IRBESARTAN
     Dosage: 1 DF, DAILY
     Route: 048
  6. ACLASTA [Suspect]
     Active Substance: ZOLEDRONIC ACID
     Dosage: 5 MG, UNK
     Route: 042

REACTIONS (7)
  - Hypercholesterolaemia [Unknown]
  - Hypertension [Unknown]
  - Myasthenia gravis [Unknown]
  - Iron deficiency anaemia [Unknown]
  - Hiatus hernia [Unknown]
  - Osteopenia [Unknown]
  - Inguinal hernia [Unknown]

NARRATIVE: CASE EVENT DATE: 2005
